FAERS Safety Report 7042337-6 (Version None)
Quarter: 2010Q4

REPORT INFORMATION
  Report Type: 
  Country: None (occurrence: None)
  Receive Date: 20101013
  Receipt Date: 20090908
  Transmission Date: 20110411
  Serious: No
  Sender: FDA-Public Use
  Company Number: US-ASTRAZENECA-2009SE12145

PATIENT
  Sex: Female
  Weight: 97.5 kg

DRUGS (6)
  1. SYMBICORT [Suspect]
     Dosage: 160/4.5 UG 2 PUFFS
     Route: 055
  2. LEVOTHYROXINE [Concomitant]
  3. FLECAINIDE ACETATE [Concomitant]
  4. TOPROL-XL [Concomitant]
  5. ALBUTEROL [Concomitant]
  6. POTASSIUM [Concomitant]

REACTIONS (1)
  - ALOPECIA [None]
